FAERS Safety Report 5701690-3 (Version None)
Quarter: 2008Q2

REPORT INFORMATION
  Report Type: 
  Country: None (occurrence: None)
  Receive Date: 20080408
  Receipt Date: 20080328
  Transmission Date: 20081010
  Serious: Yes (Other)
  Sender: FDA-Public Use
  Company Number: 2007SP016079

PATIENT
  Age: 88 Year
  Sex: Male

DRUGS (8)
  1. TEMOZOLOMIDE [Suspect]
     Indication: GLIOBLASTOMA MULTIFORME
     Dosage: 75 MG/M2; QD; 200 MG;/M2; QM
  2. TEMOZOLOMIDE [Suspect]
     Indication: GLIOBLASTOMA MULTIFORME
     Dosage: 75 MG/M2; QD; 200 MG;/M2; QM
  3. ATENOLOL [Concomitant]
  4. NIFEDIPINE [Concomitant]
  5. SIMVASTATIN [Concomitant]
  6. LEVOTHYROXINE SODIUM [Concomitant]
  7. HYDROCHLOROTHIAZIDE [Concomitant]
  8. DEXAMETHASONE TAB [Concomitant]

REACTIONS (6)
  - CRYPTOGENIC ORGANISING PNEUMONIA [None]
  - HAEMOGLOBIN DECREASED [None]
  - HYPOXIA [None]
  - NEUTROPHIL COUNT INCREASED [None]
  - PULMONARY TOXICITY [None]
  - WHITE BLOOD CELL COUNT DECREASED [None]
